FAERS Safety Report 7456233-3 (Version None)
Quarter: 2011Q2

REPORT INFORMATION
  Report Type: 
  Country: None (occurrence: None)
  Receive Date: 20110503
  Receipt Date: 20110420
  Transmission Date: 20111010
  Serious: No
  Sender: FDA-Public Use
  Company Number: US-B.I. PHARMACEUTICALS,INC./RIDGEFIELD-2011-BP-11343BP

PATIENT
  Sex: Female

DRUGS (16)
  1. PRADAXA [Suspect]
     Indication: PROTEIN C DEFICIENCY
     Dosage: 300 MG
     Route: 048
     Dates: start: 20110415
  2. VENTOLIN [Concomitant]
     Indication: ASTHMA
     Route: 055
  3. FIBERCON [Concomitant]
     Indication: IRRITABLE BOWEL SYNDROME
     Route: 048
  4. PROBIOTIC COMPLEX [Concomitant]
     Indication: PROPHYLAXIS
     Route: 048
  5. VALIUM [Concomitant]
     Indication: CONVULSION
     Route: 048
  6. BENADRYL [Concomitant]
     Indication: MULTIPLE ALLERGIES
     Route: 048
  7. VIT B COMPLEX [Concomitant]
     Indication: PROPHYLAXIS
     Route: 048
  8. FEVERFEW [Concomitant]
     Indication: HEADACHE
     Route: 048
  9. MORPHINE [Concomitant]
     Indication: PAIN
  10. NITROGLYCERIN SPRAY [Concomitant]
     Indication: CHEST PAIN
  11. MIGRANAL [Concomitant]
     Indication: MIGRAINE
  12. ZYRTEC [Concomitant]
     Indication: MULTIPLE ALLERGIES
     Route: 048
  13. IRON SUPPLEMENT [Concomitant]
     Indication: ANAEMIA
     Route: 048
  14. FOLIC ACID [Concomitant]
     Indication: ANAEMIA
     Route: 048
  15. MORPHINE [Concomitant]
  16. MELATONIN [Concomitant]
     Indication: INSOMNIA
     Route: 048

REACTIONS (2)
  - HEADACHE [None]
  - DIZZINESS [None]
